FAERS Safety Report 17456934 (Version 4)
Quarter: 2020Q3

REPORT INFORMATION
  Report Type: Spontaneous
  Country: DE (occurrence: DE)
  Receive Date: 20200225
  Receipt Date: 20200910
  Transmission Date: 20201102
  Serious: Yes (Disabling, Other)
  Sender: FDA-Public Use
  Company Number: NVSC2020DE046518

PATIENT
  Sex: Male
  Weight: 73 kg

DRUGS (31)
  1. METHOTREXATE. [Suspect]
     Active Substance: METHOTREXATE
     Indication: PSORIATIC ARTHROPATHY
     Dosage: 5 MG
     Route: 058
     Dates: start: 1980, end: 2017
  2. METOPROLOL. [Concomitant]
     Active Substance: METOPROLOL
     Indication: BLOOD PRESSURE MANAGEMENT
     Dosage: 100 MG, QD
     Route: 048
  3. DECORTIN H [Concomitant]
     Active Substance: PREDNISOLONE
     Indication: PSORIATIC ARTHROPATHY
     Dosage: 7.5 MG, QD
     Route: 048
  4. DUROGESIC [Concomitant]
     Active Substance: FENTANYL
     Dosage: 7.5 UG, QH
     Route: 062
  5. HCT [Concomitant]
     Active Substance: HYDROCHLOROTHIAZIDE
     Route: 048
  6. ALLOPURINOL. [Concomitant]
     Active Substance: ALLOPURINOL
     Indication: BLOOD URIC ACID INCREASED
     Dosage: 300 MG, QD (FREQUENCY?0.5 IN 1 DAY)
     Route: 048
  7. DUROGESIC [Concomitant]
     Active Substance: FENTANYL
     Indication: PAIN
     Dosage: 7.5 UG/HR
     Route: 062
  8. SIMVAHEXAL [Concomitant]
     Active Substance: SIMVASTATIN
     Dosage: 1 UNK, QD
     Route: 048
  9. SIMVAHEXAL [Concomitant]
     Active Substance: SIMVASTATIN
     Route: 048
  10. OPIPRAM [Concomitant]
     Active Substance: OPIPRAMOL HYDROCHLORIDE
     Indication: SLEEP DISORDER
     Dosage: 50 MG, BID (50 MG, 0.5 AT EVENING, 1 AT NIGHT)
     Route: 048
  11. ESCITALOPRAM [Concomitant]
     Active Substance: ESCITALOPRAM OXALATE
     Indication: DEPRESSION
     Dosage: 20 DF (10 GTT)
     Route: 048
  12. ESOMEPRAZOL [Concomitant]
     Active Substance: ESOMEPRAZOLE
     Indication: PROPHYLAXIS
     Dosage: 40 MG, QD
     Route: 048
  13. COLCHICUM [Concomitant]
     Active Substance: COLCHICINE
     Indication: CHONDROCALCINOSIS PYROPHOSPHATE
     Dosage: 0.5 MG, QD
     Route: 048
  14. TAMSULOSIN [Concomitant]
     Active Substance: TAMSULOSIN
     Indication: PROSTATOMEGALY
     Dosage: 0.4 MG, QD
     Route: 048
  15. HUMIRA [Suspect]
     Active Substance: ADALIMUMAB
     Indication: PSORIASIS
     Dosage: 40 MG, BIW
     Route: 058
     Dates: start: 20130429, end: 201712
  16. HUMIRA [Suspect]
     Active Substance: ADALIMUMAB
     Dosage: 40 MG, BIW
     Route: 058
     Dates: end: 20180314
  17. OPIPRAM [Concomitant]
     Active Substance: OPIPRAMOL HYDROCHLORIDE
     Indication: DEPRESSION
     Dosage: UNK
     Route: 065
  18. HCT [Concomitant]
     Active Substance: HYDROCHLOROTHIAZIDE
     Indication: BLOOD PRESSURE MANAGEMENT
     Dosage: 1 DF, QD
     Route: 048
  19. VIGANTOL [Concomitant]
     Indication: PROPHYLAXIS
     Dosage: 1000 IU, QD
     Route: 048
  20. METHOTREXATE. [Suspect]
     Active Substance: METHOTREXATE
     Indication: PSORIASIS
     Dosage: 7.5 MG, QW
     Route: 058
     Dates: start: 20180407
  21. METOPROLOL. [Concomitant]
     Active Substance: METOPROLOL
     Dosage: 50 MG, QD (FREQUENCY?0.5?1 DAY)
     Route: 048
  22. ASPIRIN PROTECT [Concomitant]
     Active Substance: ASPIRIN
     Indication: PRODUCT USED FOR UNKNOWN INDICATION
     Dosage: 100 MG, QD
     Route: 048
  23. COLCHICUM [Concomitant]
     Active Substance: COLCHICINE
     Dosage: 1 MG, QD
     Route: 048
  24. ENBREL [Suspect]
     Active Substance: ETANERCEPT
     Indication: PSORIATIC ARTHROPATHY
     Dosage: 50 MG, QW
     Route: 058
     Dates: start: 201803
  25. ENBREL [Suspect]
     Active Substance: ETANERCEPT
     Indication: PSORIASIS
  26. BEN?U?RON [Concomitant]
     Active Substance: ACETAMINOPHEN
     Indication: PAIN
     Dosage: 1000 MG, QD
     Route: 048
  27. PREGABALIN. [Concomitant]
     Active Substance: PREGABALIN
     Indication: PAIN
     Dosage: 25 MG, QD
     Route: 048
  28. DECORTIN H [Concomitant]
     Active Substance: PREDNISOLONE
     Dosage: 5 MG, QD
     Route: 048
     Dates: start: 20180425
  29. VALSARTAN. [Concomitant]
     Active Substance: VALSARTAN
     Indication: BLOOD PRESSURE MANAGEMENT
     Dosage: 160 MG, QD
     Route: 065
  30. FOLIC ACID. [Concomitant]
     Active Substance: FOLIC ACID
     Indication: DRUG THERAPY
     Dosage: 5 MG, QW
     Route: 048
  31. SIMVAHEXAL [Concomitant]
     Active Substance: SIMVASTATIN
     Indication: PRODUCT USED FOR UNKNOWN INDICATION
     Dosage: 1 DF, QD
     Route: 048

REACTIONS (17)
  - Panic attack [Unknown]
  - Insomnia [Not Recovered/Not Resolved]
  - Musculoskeletal discomfort [Unknown]
  - Arthralgia [Unknown]
  - Condition aggravated [Unknown]
  - Pain [Unknown]
  - Night sweats [Unknown]
  - Initial insomnia [Not Recovered/Not Resolved]
  - Psoriasis [Unknown]
  - Fatigue [Not Recovered/Not Resolved]
  - Rash [Unknown]
  - Drug ineffective [Unknown]
  - Weight decreased [Recovered/Resolved]
  - Neoplasm [Unknown]
  - Drug ineffective [Unknown]
  - Musculoskeletal stiffness [Unknown]
  - Arthropathy [Not Recovered/Not Resolved]

NARRATIVE: CASE EVENT DATE: 201606
